FAERS Safety Report 8385723-4 (Version None)
Quarter: 2012Q2

REPORT INFORMATION
  Report Type: 
  Country: None (occurrence: None)
  Receive Date: 20120523
  Receipt Date: 20120515
  Transmission Date: 20120825
  Serious: Yes (Hospitalization, Other)
  Sender: FDA-Public Use
  Company Number: FK201201384

PATIENT
  Age: 21 Year
  Sex: Female

DRUGS (3)
  1. TOBRAMYCIN [Suspect]
     Indication: PRODUCT USED FOR UNKNOWN INDICATION
     Dosage: 7 MG/KG, DAILY ON HOSPITAL DAY 3, INTRAVENOUS (NOT OTHERWISE SPECIFIED)
     Route: 042
  2. RIFAMPIN [Suspect]
     Indication: PRODUCT USED FOR UNKNOWN INDICATION
  3. AMILORIDE HCL [Suspect]
     Indication: ELECTROLYTE DEPLETION
     Dosage: 10 MG, DAILY

REACTIONS (1)
  - BARTTER'S SYNDROME [None]
